FAERS Safety Report 9448864 (Version 3)
Quarter: 2013Q3

REPORT INFORMATION
  Report Type: Spontaneous
  Country: JP (occurrence: JP)
  Receive Date: 20130808
  Receipt Date: 20130909
  Transmission Date: 20140515
  Serious: Yes (Life-Threatening, Other)
  Sender: FDA-Public Use
  Company Number: JP-009507513-1308JPN000885

PATIENT
  Age: 78 Year
  Sex: Female
  Weight: 55 kg

DRUGS (5)
  1. STROMECTOL TABLETS 3 MG [Suspect]
     Indication: ACARODERMATITIS
     Dosage: 9 MG, ONCE, 3 TABLET
     Route: 048
     Dates: start: 20130725, end: 20130725
  2. RISPERIDONE [Concomitant]
     Indication: BEHAVIOURAL AND PSYCHIATRIC SYMPTOMS OF DEMENTIA
     Dosage: 0.5 MG, QD
     Route: 048
     Dates: start: 20130226, end: 20130726
  3. RONFLEMAN [Concomitant]
     Indication: INSOMNIA
     Dosage: 0.25 MG, QD
     Route: 048
     Dates: start: 20130226, end: 20130726
  4. BAYASPIRIN [Concomitant]
     Indication: PROPHYLAXIS
     Dosage: 100 MG, QD
     Route: 048
     Dates: start: 20130226, end: 20130726
  5. SENNOSIDES [Concomitant]
     Indication: CONSTIPATION
     Dosage: 12 MG, BID
     Route: 048
     Dates: start: 20130226, end: 20130726

REACTIONS (2)
  - Neuroleptic malignant syndrome [Recovered/Resolved]
  - Rhabdomyolysis [Unknown]
